FAERS Safety Report 5385840-7 (Version None)
Quarter: 2007Q3

REPORT INFORMATION
  Report Type: 
  Country: None (occurrence: None)
  Receive Date: 20070712
  Receipt Date: 20070629
  Transmission Date: 20080115
  Serious: Yes (Other)
  Sender: FDA-Public Use
  Company Number: US-ELI_LILLY_AND_COMPANY-US200707000066

PATIENT
  Sex: Female

DRUGS (5)
  1. PROZAC [Suspect]
     Indication: DEPRESSION
     Dosage: 20 MG, DAILY (1/D)
     Route: 048
  2. PROZAC [Suspect]
     Dosage: 120 MG, DAILY (1/D)
     Route: 048
  3. ZYPREXA [Suspect]
     Indication: DEPRESSION
  4. ALPRAZOLAM [Concomitant]
  5. LORAZEPAM [Concomitant]

REACTIONS (9)
  - DENTAL CARIES [None]
  - DRUG EXPOSURE DURING PREGNANCY [None]
  - DRUG INEFFECTIVE [None]
  - DRY MOUTH [None]
  - MASTECTOMY [None]
  - OVERDOSE [None]
  - TOOTH DISCOLOURATION [None]
  - TOOTH LOSS [None]
  - TOOTHACHE [None]
